FAERS Safety Report 7750515-3 (Version None)
Quarter: 2011Q3

REPORT INFORMATION
  Report Type: 
  Country: None (occurrence: None)
  Receive Date: 20110912
  Receipt Date: 20110829
  Transmission Date: 20111222
  Serious: Yes (Hospitalization, Other)
  Sender: FDA-Public Use
  Company Number: AUR-APL-2011-04919

PATIENT
  Age: 23 Year
  Sex: Male

DRUGS (13)
  1. BETAMETHASONE [Concomitant]
  2. AMISULPRIDE [Concomitant]
  3. ARIPIPRAZOLE [Concomitant]
  4. HALOPERIDOL [Concomitant]
  5. CLONAZEPAM [Concomitant]
  6. AMOXICILLIN [Concomitant]
  7. ACETYLCYSTEINE [Concomitant]
  8. DIAZEPAM [Concomitant]
  9. RISPERIDONE [Suspect]
     Indication: SCHIZOPHRENIA, DISORGANISED TYPE
     Dosage: (6 MG,1 D) : (4 MG,1 D)
     Dates: start: 20101001
  10. RISPERIDONE [Suspect]
     Indication: SCHIZOPHRENIA, DISORGANISED TYPE
     Dosage: (6 MG,1 D) : (4 MG,1 D)
     Dates: start: 20100601
  11. CLOZAPINE [Suspect]
     Indication: SCHIZOPHRENIA, DISORGANISED TYPE
     Dosage: UP TO 900 MG (900 MG, 1 D) : (800 MG,1 D)
     Dates: end: 20100601
  12. CLOZAPINE [Suspect]
     Indication: SCHIZOPHRENIA, DISORGANISED TYPE
     Dosage: UP TO 900 MG (900 MG, 1 D) : (800 MG,1 D)
     Dates: start: 20101001
  13. VALPROIC ACID [Concomitant]

REACTIONS (10)
  - DRUG EFFECT DECREASED [None]
  - CONDITION AGGRAVATED [None]
  - SPEECH DISORDER [None]
  - DYSMORPHOPHOBIA [None]
  - SELF INJURIOUS BEHAVIOUR [None]
  - METABOLIC DISORDER [None]
  - DRUG LEVEL BELOW THERAPEUTIC [None]
  - THINKING ABNORMAL [None]
  - TACHYPHRENIA [None]
  - MENTAL DISORDER [None]
